FAERS Safety Report 9793137 (Version 1)
Quarter: 2014Q1

REPORT INFORMATION
  Report Type: Spontaneous
  Country: US (occurrence: US)
  Receive Date: 20140102
  Receipt Date: 20140102
  Transmission Date: 20141002
  Serious: Yes (Other)
  Sender: FDA-Public Use
  Company Number: US-JNJFOC-20131217177

PATIENT
  Age: 71 Year
  Sex: Female

DRUGS (6)
  1. SIMPONI [Suspect]
     Indication: RHEUMATOID ARTHRITIS
     Route: 058
     Dates: start: 201009
  2. MEDROL [Concomitant]
     Indication: RHEUMATOID ARTHRITIS
     Dosage: STARTED YEARS AGO
     Route: 048
  3. SULFASALAZINE [Concomitant]
     Indication: RHEUMATOID ARTHRITIS
     Route: 048
     Dates: start: 1986
  4. PLAQUENIL [Concomitant]
     Indication: RHEUMATOID ARTHRITIS
     Route: 048
     Dates: start: 1986
  5. LISINOPRIL [Concomitant]
     Indication: BLOOD PRESSURE
     Route: 048
     Dates: start: 2010
  6. FORADIL [Concomitant]
     Indication: RESPIRATORY DISORDER
     Route: 055
     Dates: start: 1988

REACTIONS (4)
  - Cerebrovascular accident [Unknown]
  - Visual impairment [Not Recovered/Not Resolved]
  - Weight fluctuation [Not Recovered/Not Resolved]
  - Drug dose omission [Unknown]
